FAERS Safety Report 7757074 (Version 2)
Quarter: 2012Q4

REPORT INFORMATION
  Report Type: 
  Country: NL (occurrence: NL)
  Receive Date: 20110112
  Receipt Date: 20121022
  Transmission Date: 20130627
  Serious: Yes (Other)
  Sender: FDA-Public Use
  Company Number: NL-ROCHE-751703

PATIENT

DRUGS (3)
  1. CAPECITABINE [Suspect]
     Indication: NEOPLASM MALIGNANT
     Dosage: SINGLE DOSE 7 DAYS PRIOR TO START OF TREATMENT.
     Route: 048
  2. CAPECITABINE [Suspect]
     Dosage: STARTED FROM DAY 8, TWICE DAILY FOR 14 DAYS IN A 3 WEEK CYCLE.
     Route: 048
  3. EVEROLIMUS [Suspect]
     Indication: NEOPLASM MALIGNANT
     Route: 048

REACTIONS (9)
  - Palmar-plantar erythrodysaesthesia syndrome [Unknown]
  - Fatigue [Unknown]
  - Thrombocytopenia [Unknown]
  - Gamma-glutamyltransferase increased [Unknown]
  - Blood alkaline phosphatase increased [Unknown]
  - Alanine aminotransferase increased [Unknown]
  - Blood bilirubin increased [Unknown]
  - Hypertriglyceridaemia [Unknown]
  - Nausea [Unknown]
